FAERS Safety Report 9970999 (Version 1)
Quarter: 2014Q1

REPORT INFORMATION
  Report Type: Spontaneous
  Country: US (occurrence: None)
  Receive Date: 20140305
  Receipt Date: 20140305
  Transmission Date: 20141002
  Serious: Yes (Disabling)
  Sender: FDA-Public Use
  Company Number: None

PATIENT
  Age: 31 Year
  Sex: Female
  Weight: 47.63 kg

DRUGS (2)
  1. KENALOG [Suspect]
     Indication: DERMATITIS CONTACT
     Dosage: INJECTION
  2. KENALOG [Suspect]
     Indication: DERMATITIS ALLERGIC
     Dosage: INJECTION

REACTIONS (5)
  - Paraesthesia [None]
  - Dizziness [None]
  - Herpes zoster [None]
  - Depression [None]
  - Injection site atrophy [None]
